FAERS Safety Report 4822023-0 (Version None)
Quarter: 2005Q4

REPORT INFORMATION
  Report Type: 
  Country: None (occurrence: None)
  Receive Date: 20051107
  Receipt Date: 20051031
  Transmission Date: 20060501
  Serious: Yes (Hospitalization)
  Sender: FDA-Public Use
  Company Number: US-JNJFOC-20051100226

PATIENT
  Age: 2 Day
  Sex: Male
  Weight: 2.8 kg

DRUGS (2)
  1. CHILDREN'S TYLENOL [Suspect]
     Route: 048
  2. CHILDREN'S TYLENOL [Suspect]
     Indication: DRUG USE FOR UNKNOWN INDICATION
     Dosage: 512 MG, ^}24 HR {=1 WEEK^
     Route: 048

REACTIONS (3)
  - IATROGENIC INJURY [None]
  - INCORRECT DOSE ADMINISTERED [None]
  - NEONATAL TACHYCARDIA [None]
